FAERS Safety Report 4823202-9 (Version None)
Quarter: 2005Q4

REPORT INFORMATION
  Report Type: 
  Country: None (occurrence: None)
  Receive Date: 20051103
  Receipt Date: 20051027
  Transmission Date: 20060501
  Serious: Yes (Hospitalization)
  Sender: FDA-Public Use
  Company Number: HQWYE103825AUG05

PATIENT
  Age: 69 Year
  Sex: Male

DRUGS (6)
  1. CORDARONE [Suspect]
     Indication: VENTRICULAR TACHYCARDIA
     Dosage: 350 MG 1X PER 1 DAY, ORAL
     Route: 048
     Dates: start: 20030101, end: 20050909
  2. HCT (HYDROCHLOROTHIAZIDE) [Concomitant]
  3. TOREM (TORASEMIDE) [Concomitant]
  4. CAPTOPRIL [Concomitant]
  5. ATORVASTATIN CALCIUM [Concomitant]
  6. ASPIRIN [Concomitant]

REACTIONS (2)
  - PLEURAL EFFUSION [None]
  - PNEUMONITIS [None]
